FAERS Safety Report 4435651-1 (Version None)
Quarter: 2004Q3

REPORT INFORMATION
  Report Type: 
  Country: None (occurrence: None)
  Receive Date: 20040726
  Receipt Date: 20040519
  Transmission Date: 20050211
  Serious: No
  Sender: FDA-Public Use
  Company Number: USA040568044

PATIENT
  Age: 68 Year
  Sex: Female

DRUGS (8)
  1. FORTEO [Suspect]
     Indication: OSTEOPOROSIS
     Dosage: 20 UG DAY
  2. EVISTA [Suspect]
     Indication: OSTEOPOROSIS
     Dosage: 60 MG DAY
     Dates: start: 20040517, end: 20040519
  3. DITROPAN XL [Concomitant]
  4. HIGH BLOOD PRESSURE PILLS [Concomitant]
  5. ZYRTEC [Concomitant]
  6. ATIVAN [Concomitant]
  7. REMERON [Concomitant]
  8. ACTONEL [Concomitant]

REACTIONS (6)
  - CONSTIPATION [None]
  - FEELING ABNORMAL [None]
  - HOT FLUSH [None]
  - INJECTION SITE ERYTHEMA [None]
  - LOOSE STOOLS [None]
  - MUSCLE CRAMP [None]
